FAERS Safety Report 16381062 (Version 2)
Quarter: 2019Q3

REPORT INFORMATION
  Report Type: Spontaneous
  Country: DE (occurrence: DE)
  Receive Date: 20190602
  Receipt Date: 20190719
  Transmission Date: 20191004
  Serious: Yes (Hospitalization, Other)
  Sender: FDA-Public Use
  Company Number: PHHY2019DE122937

PATIENT
  Age: 57 Year
  Sex: Male

DRUGS (3)
  1. PANTOPRAZOL [Suspect]
     Active Substance: PANTOPRAZOLE SODIUM
     Indication: PRODUCT USED FOR UNKNOWN INDICATION
     Dosage: UNK
     Route: 048
  2. OMEPRAZOL-RATIOPHARM NT [Suspect]
     Active Substance: OMEPRAZOLE
     Indication: DYSPEPSIA
     Dosage: 40 MG, QD (1-0-0)
     Route: 048
     Dates: end: 2016
  3. NEXIUM [Suspect]
     Active Substance: ESOMEPRAZOLE MAGNESIUM
     Indication: PRODUCT USED FOR UNKNOWN INDICATION
     Dosage: UNK (FOR 10 YEARS)
     Route: 048

REACTIONS (18)
  - Panic attack [Not Recovered/Not Resolved]
  - Joint dislocation [Not Recovered/Not Resolved]
  - Osteoporosis [Not Recovered/Not Resolved]
  - Myalgia [Unknown]
  - Vision blurred [Unknown]
  - Hyperhidrosis [Unknown]
  - Pancreatitis [Unknown]
  - Anxiety [Not Recovered/Not Resolved]
  - Diarrhoea [Unknown]
  - Abdominal pain [Unknown]
  - Hypertension [Recovered/Resolved]
  - Depression [Unknown]
  - Blood cholesterol increased [Recovered/Resolved]
  - Tachycardia [Unknown]
  - Taste disorder [Unknown]
  - Hallucination [Unknown]
  - Drug ineffective [Unknown]
  - Calcium deficiency [Unknown]
